FAERS Safety Report 23681707 (Version 2)
Quarter: 2024Q2

REPORT INFORMATION
  Report Type: Spontaneous
  Country: US (occurrence: US)
  Receive Date: 20240328
  Receipt Date: 20240411
  Transmission Date: 20240716
  Serious: Yes (Hospitalization)
  Sender: FDA-Public Use
  Company Number: US-PARI RESPIRATORY EQUIPMENT, INC.-2024PAR00027

PATIENT
  Age: 1 Year
  Sex: Female
  Weight: 6.803 kg

DRUGS (14)
  1. KITABIS PAK [Suspect]
     Active Substance: TOBRAMYCIN
     Indication: Neonatal pulmonary hypertension
     Dosage: 300 MG, 2X/DAY FOR 14 DAYS ON AND 14 DAYS OFF IN THE MORNING AND BEFORE BEDTIME
     Dates: start: 202312, end: 2024
  2. KITABIS PAK [Suspect]
     Active Substance: TOBRAMYCIN
     Indication: Bronchopulmonary dysplasia
     Dosage: 300 MG, 2X/DAY FOR 14 DAYS ON AND 14 DAYS OFF IN THE MORNING AND BEFORE BEDTIME
     Dates: start: 20240304
  3. KITABIS PAK [Suspect]
     Active Substance: TOBRAMYCIN
     Indication: Tracheostomy
  4. SYNAGIS [Concomitant]
     Active Substance: PALIVIZUMAB
  5. SILDENAFIL [Concomitant]
     Active Substance: SILDENAFIL
  6. SODIUM CHLORIDE [Concomitant]
     Active Substance: SODIUM CHLORIDE
  7. SILDENAFIL CITRATE [Concomitant]
     Active Substance: SILDENAFIL CITRATE
  8. NYSTATIN [Concomitant]
     Active Substance: NYSTATIN
  9. NEXIUM I.V. [Concomitant]
     Active Substance: ESOMEPRAZOLE SODIUM
  10. DIURIL [CHLOROTHIAZIDE SODIUM] [Concomitant]
  11. PULMICORT TURBUHALER [Concomitant]
     Active Substance: BUDESONIDE
  12. ALBUTEROL SULFATE [Concomitant]
     Active Substance: ALBUTEROL SULFATE
  13. VITAMINS [Concomitant]
     Active Substance: VITAMINS
  14. VITAMIN D NOS [Concomitant]
     Active Substance: VITAMIN D NOS

REACTIONS (4)
  - Ear infection [Recovered/Resolved]
  - Increased bronchial secretion [Unknown]
  - Hypoacusis [Unknown]
  - Off label use [Recovered/Resolved]

NARRATIVE: CASE EVENT DATE: 20240301
